FAERS Safety Report 8338246-2 (Version None)
Quarter: 2012Q2

REPORT INFORMATION
  Report Type: 
  Country: None (occurrence: None)
  Receive Date: 20120504
  Receipt Date: 20120427
  Transmission Date: 20120825
  Serious: Yes (Disabling, Other)
  Sender: FDA-Public Use
  Company Number: US-MERCK-1201USA00775

PATIENT
  Age: 48 Year
  Sex: Female

DRUGS (3)
  1. PENTASA [Concomitant]
     Route: 065
  2. FOSAMAX [Suspect]
     Route: 048
     Dates: start: 19990101, end: 20030101
  3. BONIVA [Suspect]
     Route: 065
     Dates: start: 19990101, end: 20080101

REACTIONS (7)
  - VITAMIN D DEFICIENCY [None]
  - ADVERSE EVENT [None]
  - WRIST FRACTURE [None]
  - PAIN [None]
  - CALCIUM DEFICIENCY [None]
  - FEMUR FRACTURE [None]
  - DEVICE FAILURE [None]
